FAERS Safety Report 8947268 (Version 2)
Quarter: 2013Q1

REPORT INFORMATION
  Report Type: Spontaneous
  Country: IT (occurrence: IT)
  Receive Date: 20121205
  Receipt Date: 20130103
  Transmission Date: 20140127
  Serious: Yes (Death, Hospitalization)
  Sender: FDA-Public Use
  Company Number: IT-MERCK-1211ITA012166

PATIENT
  Age: 69 Year
  Sex: Male

DRUGS (4)
  1. TEMODAL [Suspect]
     Indication: GLIOBLASTOMA MULTIFORME
     Dosage: 120 MG, QD
     Dates: start: 20120123, end: 20120308
  2. TEMODAL [Suspect]
     Dosage: 370 MG, QD
     Dates: start: 201204, end: 2012
  3. TEMODAL [Suspect]
     Dosage: 370 MG, QD
     Dates: start: 20120528, end: 2012
  4. TEMODAL [Suspect]
     Dosage: 370 MG, UNK
     Dates: start: 20120828, end: 20120901

REACTIONS (2)
  - Death [Fatal]
  - Respiratory failure [Fatal]
